FAERS Safety Report 23788715 (Version 1)
Quarter: 2024Q2

REPORT INFORMATION
  Report Type: Spontaneous
  Country: US (occurrence: US)
  Receive Date: 20240426
  Receipt Date: 20240426
  Transmission Date: 20240715
  Serious: Yes (Death, Hospitalization)
  Sender: FDA-Public Use
  Company Number: US-MYLANLABS-2024M1037939

PATIENT
  Sex: Male
  Weight: 72.1 kg

DRUGS (6)
  1. NOREPINEPHRINE BITARTRATE [Suspect]
     Active Substance: NOREPINEPHRINE BITARTRATE
     Indication: Septic shock
     Dosage: 4 MILLIGRAM (4MG IN D5W 250 ML (PREMIX) AT 9 MCG/MIN)
     Route: 042
     Dates: start: 20230630
  2. NOREPINEPHRINE BITARTRATE [Suspect]
     Active Substance: NOREPINEPHRINE BITARTRATE
     Dosage: 16 MILLIGRAM (16 MG IN NS 250 ML USING PRODUCT ABOVE)
     Route: 042
  3. PIPERACILLIN SODIUM\TAZOBACTAM SODIUM [Concomitant]
     Active Substance: PIPERACILLIN SODIUM\TAZOBACTAM SODIUM
     Dosage: 4.5 GRAM, BID (0.9 PERCENT SODIUM CHLORIDE 100 ML IVPB)
     Route: 042
  4. VANCOMYCIN [Concomitant]
     Active Substance: VANCOMYCIN
     Dosage: 1.75 GRAM, QD (0.9 PERCENT SODIUM CHLORIDE 500 ML IVPB)
     Route: 042
  5. DEXMEDETOMIDINE [Concomitant]
     Active Substance: DEXMEDETOMIDINE
     Dosage: UNK, 0.8 MCG/KG/HR
     Route: 065
  6. VASOPRESSIN [Concomitant]
     Active Substance: VASOPRESSIN
     Dosage: UNK (0.04 UNITS/MIN)
     Route: 065

REACTIONS (3)
  - Mean arterial pressure decreased [Fatal]
  - Product substitution issue [Unknown]
  - Product compounding quality issue [Unknown]
